FAERS Safety Report 6522539-5 (Version None)
Quarter: 2009Q4

REPORT INFORMATION
  Report Type: 
  Country: None (occurrence: None)
  Receive Date: 20091229
  Receipt Date: 20091229
  Transmission Date: 20100525
  Serious: Yes (Hospitalization)
  Sender: FDA-Public Use
  Company Number: None

PATIENT
  Age: 50 Year
  Sex: Male
  Weight: 75 kg

DRUGS (20)
  1. ABILIFY [Suspect]
     Indication: SCHIZOPHRENIA
     Dosage: 10 MG ONCE DAILY ORAL
     Route: 048
     Dates: start: 20091103
  2. TRILAFON [Suspect]
     Indication: SCHIZOPHRENIA
     Dosage: 2 MG 3 TIMES DAILY ORAL
     Route: 048
     Dates: start: 20091103
  3. SPIRIVA [Concomitant]
  4. RANITIDINE HYDROCHLORIDE [Concomitant]
  5. ACETAMINOPHEN [Concomitant]
  6. SODIUM CHLORIDE [Concomitant]
  7. ALBUTEROL SOLN INHALER [Concomitant]
  8. GUAIFENESIN [Concomitant]
  9. TRIAMCINOLONE [Concomitant]
  10. DIPHENHYDRAMINE HCL [Concomitant]
  11. DM 10/GUAIFENESIN [Concomitant]
  12. CERTIRIZINE [Concomitant]
  13. TRIHEXYPHENIDYL HCL [Concomitant]
  14. CHLORHEXIDINE GLUCONATE [Concomitant]
  15. HYDROCORTISONE [Concomitant]
  16. IBUPROFEN [Concomitant]
  17. TIOTROPIUM [Concomitant]
  18. OTC NASAL SPRAY [Concomitant]
  19. BENZONATE [Concomitant]
  20. VICK'S BRAND INHALER [Concomitant]

REACTIONS (2)
  - ASTHMA [None]
  - DRUG INEFFECTIVE [None]
